FAERS Safety Report 6073930-5 (Version None)
Quarter: 2009Q1

REPORT INFORMATION
  Report Type: 
  Country: None (occurrence: None)
  Receive Date: 20090211
  Receipt Date: 20090205
  Transmission Date: 20090719
  Serious: Yes (Other)
  Sender: FDA-Public Use
  Company Number: IE-ASTRAZENECA-2009GB00407

PATIENT
  Age: 11815 Day
  Sex: Female

DRUGS (3)
  1. SYMBICORT TURBOHALER 100/6 [Suspect]
     Indication: COUGH
     Dosage: 100/6
     Route: 055
     Dates: start: 20090120, end: 20090120
  2. SYMBICORT TURBOHALER 100/6 [Suspect]
     Indication: ASTHMA
     Dosage: 100/6
     Route: 055
     Dates: start: 20090120, end: 20090120
  3. LIP BALM MANDARIN [Suspect]
     Dates: start: 20090120, end: 20090120

REACTIONS (4)
  - LIP SWELLING [None]
  - NASAL OEDEMA [None]
  - PHARYNGEAL OEDEMA [None]
  - RASH MACULO-PAPULAR [None]
